FAERS Safety Report 7237731-4 (Version None)
Quarter: 2011Q1

REPORT INFORMATION
  Report Type: 
  Country: None (occurrence: None)
  Receive Date: 20110121
  Receipt Date: 20110112
  Transmission Date: 20110831
  Serious: Yes (Other)
  Sender: FDA-Public Use
  Company Number: CA-JNJFOC-20110103694

PATIENT
  Sex: Female
  Weight: 50.8 kg

DRUGS (5)
  1. POTASSIUM [Suspect]
     Indication: PRODUCT USED FOR UNKNOWN INDICATION
  2. LOPERAMIDE [Concomitant]
  3. REMICADE [Suspect]
     Route: 042
  4. REMICADE [Suspect]
     Indication: CROHN'S DISEASE
     Dosage: 4TH INFUSION
     Route: 042
  5. IMURAN [Concomitant]
     Route: 048

REACTIONS (5)
  - PARAESTHESIA [None]
  - NAUSEA [None]
  - ABDOMINAL PAIN [None]
  - VOMITING [None]
  - HYPOAESTHESIA [None]
